FAERS Safety Report 6763017-8 (Version None)
Quarter: 2010Q2

REPORT INFORMATION
  Report Type: 
  Country: None (occurrence: None)
  Receive Date: 20100609
  Receipt Date: 20100528
  Transmission Date: 20101027
  Serious: Yes (Other)
  Sender: FDA-Public Use
  Company Number: IN-WATSON-2010-07437

PATIENT
  Age: 64 Year
  Sex: Female

DRUGS (2)
  1. RISPERIDONE [Suspect]
     Indication: SCHIZOPHRENIA
     Dosage: 4 MG, DAILY
  2. RISPERIDONE [Suspect]
     Dosage: 2 MG, DAILY

REACTIONS (5)
  - PYREXIA [None]
  - RESPIRATORY DYSKINESIA [None]
  - TARDIVE DYSKINESIA [None]
  - VIRAL INFECTION [None]
  - WITHDRAWAL SYNDROME [None]
